FAERS Safety Report 5362707-1 (Version None)
Quarter: 2007Q2

REPORT INFORMATION
  Report Type: 
  Country: None (occurrence: None)
  Receive Date: 20070612
  Receipt Date: 20070529
  Transmission Date: 20071010
  Serious: Yes (Hospitalization)
  Sender: FDA-Public Use
  Company Number: 2007000978

PATIENT
  Age: 74 Year
  Sex: Male

DRUGS (7)
  1. ERLOTINIB (TABLET) [Suspect]
     Indication: NON-SMALL CELL LUNG CANCER
     Dosage: 150 MG (QD), ORAL
     Route: 048
     Dates: start: 20070503
  2. TOREM (TORASEMIDE) [Concomitant]
  3. RAMIPRIL [Concomitant]
  4. DIGITOXIN TAB [Concomitant]
  5. TAMSULOSIN HCL [Concomitant]
  6. LORAZEPAM [Concomitant]
  7. DURAGESIC-100 [Concomitant]

REACTIONS (2)
  - BLEPHARITIS [None]
  - DIVERTICULUM [None]
